FAERS Safety Report 8423390-1 (Version None)
Quarter: 2012Q2

REPORT INFORMATION
  Report Type: 
  Country: None (occurrence: None)
  Receive Date: 20120323
  Receipt Date: 20110217
  Transmission Date: 20120825
  Serious: Yes (Hospitalization)
  Sender: FDA-Public Use
  Company Number: 163-21880-11022362

PATIENT
  Age: 77 Year
  Sex: Male

DRUGS (2)
  1. REVLIMID [Suspect]
     Indication: MULTIPLE MYELOMA
     Dosage: 15 MG, DAILY X14, PO, 10 MG, X14 DAYS, PO
     Route: 048
     Dates: start: 20110217
  2. REVLIMID [Suspect]
     Indication: MULTIPLE MYELOMA
     Dosage: 15 MG, DAILY X14, PO, 10 MG, X14 DAYS, PO
     Route: 048
     Dates: start: 20110120, end: 20110208

REACTIONS (1)
  - PULMONARY EMBOLISM [None]
